FAERS Safety Report 7716893 (Version 3)
Quarter: 2013Q3

REPORT INFORMATION
  Report Type: Spontaneous
  Country: US (occurrence: US)
  Receive Date: 20101217
  Receipt Date: 20130921
  Transmission Date: 20140515
  Serious: Yes (Hospitalization, Other)
  Sender: FDA-Public Use
  Company Number: US-ROCHE-727618

PATIENT
  Age: 18 Year
  Sex: Male
  Weight: 74.8 kg

DRUGS (10)
  1. ACCUTANE [Suspect]
     Indication: ACNE
     Route: 065
     Dates: start: 200012, end: 200105
  2. ACCUTANE [Suspect]
     Route: 065
     Dates: start: 200111, end: 200204
  3. DOXYCYCLINE [Concomitant]
     Route: 065
  4. DOXYCYCLINE [Concomitant]
     Route: 065
  5. AMOXICILLIN [Concomitant]
     Route: 065
  6. DYNACIN [Concomitant]
  7. CLARITIN [Concomitant]
     Indication: HYPERSENSITIVITY
  8. LOTRISONE [Concomitant]
     Route: 065
     Dates: start: 200101
  9. TAZORAC [Concomitant]
     Route: 065
     Dates: start: 200107
  10. CLEOCIN T LOTION [Concomitant]
     Route: 065
     Dates: start: 200107

REACTIONS (10)
  - Crohn^s disease [Unknown]
  - Inflammatory bowel disease [Unknown]
  - Perirectal abscess [Unknown]
  - Anal fissure [Unknown]
  - Colitis ulcerative [Unknown]
  - Intestinal haemorrhage [Unknown]
  - Intestinal obstruction [Unknown]
  - Blood cholesterol increased [Unknown]
  - Blood triglycerides increased [Unknown]
  - Blood alkaline phosphatase increased [Unknown]
